FAERS Safety Report 10271514 (Version 2)
Quarter: 2014Q3

REPORT INFORMATION
  Report Type: Spontaneous
  Country: US (occurrence: US)
  Receive Date: 20140701
  Receipt Date: 20140826
  Transmission Date: 20150326
  Serious: No
  Sender: FDA-Public Use
  Company Number: US-009507513-1406USA007172

PATIENT
  Sex: Male
  Weight: 92.97 kg

DRUGS (1)
  1. MIRALAX [Suspect]
     Active Substance: POLYETHYLENE GLYCOL 3350
     Indication: CONSTIPATION
     Dosage: 17 G, QD
     Route: 048

REACTIONS (3)
  - Product quality issue [Unknown]
  - Incorrect drug administration duration [Unknown]
  - Drug prescribing error [Unknown]
